FAERS Safety Report 10034585 (Version 1)
Quarter: 2014Q1

REPORT INFORMATION
  Report Type: Spontaneous
  Country: IT (occurrence: IT)
  Receive Date: 20140325
  Receipt Date: 20140325
  Transmission Date: 20141002
  Serious: Yes (Other)
  Sender: FDA-Public Use
  Company Number: IT-MYLANLABS-2014S1005883

PATIENT
  Age: 80 Year
  Sex: Female
  Weight: 56 kg

DRUGS (10)
  1. IRINOTECAN HYDROCHLORIDE TRIHYDRATE [Suspect]
     Indication: COLON CANCER
     Dosage: 130 MG CYCLICAL
     Route: 042
     Dates: start: 20130130, end: 20130611
  2. ERBITUX [Suspect]
     Indication: COLON CANCER
     Dosage: 700 MG CYCLICAL
     Route: 042
     Dates: start: 20130130, end: 20131211
  3. FLUOROURACIL [Suspect]
     Indication: COLON CANCER
     Dosage: 420 MG CYCLICAL
     Route: 040
     Dates: start: 20130130, end: 20130611
  4. FLUOROURACIL [Suspect]
     Indication: COLON CANCER
     Dosage: 2520 MG CYCLICAL
     Route: 041
     Dates: start: 20130130, end: 20130611
  5. PLAUNAZIDE [Concomitant]
     Indication: PRODUCT USED FOR UNKNOWN INDICATION
  6. LANOXIN [Concomitant]
     Indication: PRODUCT USED FOR UNKNOWN INDICATION
  7. NOVORAPID [Concomitant]
     Indication: PRODUCT USED FOR UNKNOWN INDICATION
  8. LEVEMIR [Concomitant]
     Indication: PRODUCT USED FOR UNKNOWN INDICATION
  9. RYTMONORM [Concomitant]
     Indication: PRODUCT USED FOR UNKNOWN INDICATION
  10. FOLINIC ACID [Concomitant]
     Indication: PRODUCT USED FOR UNKNOWN INDICATION
     Dosage: 210 MG
     Route: 042
     Dates: start: 20130130, end: 20130611

REACTIONS (1)
  - Herpes zoster [Unknown]
